FAERS Safety Report 6687177-2 (Version None)
Quarter: 2010Q2

REPORT INFORMATION
  Report Type: 
  Country: None (occurrence: None)
  Receive Date: 20100416
  Receipt Date: 20100416
  Transmission Date: 20101027
  Serious: No
  Sender: FDA-Public Use
  Company Number: None

PATIENT
  Age: 28 Year
  Sex: Female
  Weight: 75.2 kg

DRUGS (1)
  1. MAGNEVIST [Suspect]
     Indication: NUCLEAR MAGNETIC RESONANCE IMAGING
     Dosage: X1 IV
     Route: 042
     Dates: start: 20100412

REACTIONS (6)
  - DYSPNOEA [None]
  - ERYTHEMA [None]
  - PRURITUS [None]
  - STRIDOR [None]
  - THROAT TIGHTNESS [None]
  - URTICARIA [None]
